FAERS Safety Report 5638793-8 (Version None)
Quarter: 2008Q1

REPORT INFORMATION
  Report Type: 
  Country: None (occurrence: None)
  Receive Date: 20080226
  Receipt Date: 20080212
  Transmission Date: 20080703
  Serious: Yes (Hospitalization)
  Sender: FDA-Public Use
  Company Number: FR-JNJFOC-20080106568

PATIENT
  Sex: Female

DRUGS (11)
  1. IXPRIM [Suspect]
     Route: 048
  2. IXPRIM [Suspect]
     Indication: PROCEDURAL PAIN
     Route: 048
  3. PROFENID [Suspect]
     Indication: PROCEDURAL PAIN
     Route: 042
  4. CLAMOXYL [Suspect]
     Indication: INFECTION PROPHYLAXIS
     Route: 042
  5. GENTAMICIN [Suspect]
     Indication: INFECTION PROPHYLAXIS
     Route: 042
  6. PERFALGAN [Suspect]
     Indication: PROCEDURAL PAIN
     Route: 042
  7. LOVENOX [Suspect]
     Indication: PROPHYLAXIS
     Route: 058
  8. CEFACIDAL [Suspect]
     Indication: PROPHYLAXIS
     Route: 042
  9. DAFALGAN [Suspect]
     Indication: PROCEDURAL PAIN
     Route: 048
     Dates: start: 20070922, end: 20071001
  10. NEXIUM [Suspect]
     Indication: PANCREATITIS
     Route: 048
     Dates: start: 20070923, end: 20071012
  11. LAROXYL [Suspect]
     Indication: DRUG USE FOR UNKNOWN INDICATION
     Route: 048

REACTIONS (2)
  - LEUKOPENIA [None]
  - NEUTROPENIA [None]
